FAERS Safety Report 5598762-3 (Version None)
Quarter: 2008Q1

REPORT INFORMATION
  Report Type: 
  Country: None (occurrence: None)
  Receive Date: 20080122
  Receipt Date: 20080110
  Transmission Date: 20080703
  Serious: Yes (Hospitalization, Other)
  Sender: FDA-Public Use
  Company Number: US-RANBAXY-2008US-12429

PATIENT

DRUGS (10)
  1. VERAPAMIL [Suspect]
     Indication: BLOOD PRESSURE INCREASED
     Dosage: UNK
     Route: 048
     Dates: start: 20070919, end: 20070928
  2. VERAPAMIL [Suspect]
     Dosage: 80 MG, QD
  3. VERAPAMIL [Suspect]
     Dosage: 60 MG, QD
  4. VERAPAMIL [Suspect]
     Dosage: 80 MG, QD
  5. VALSARTAN [Suspect]
     Indication: BLOOD PRESSURE INCREASED
     Dosage: UNK
     Dates: start: 20070919, end: 20070928
  6. FLECAINIDE ACETATE [Suspect]
     Indication: BLOOD PRESSURE INCREASED
     Dosage: UNK
     Dates: start: 20070919, end: 20070928
  7. FUROSEMIDE [Concomitant]
     Indication: BLOOD PRESSURE INCREASED
  8. FERROUS SULFATE [Concomitant]
     Indication: DRUG USE FOR UNKNOWN INDICATION
  9. CALCIUM D3 [Concomitant]
     Indication: DRUG USE FOR UNKNOWN INDICATION
  10. AMLODIPINE [Concomitant]
     Indication: DRUG USE FOR UNKNOWN INDICATION

REACTIONS (7)
  - ASTHENIA [None]
  - ATRIAL FIBRILLATION [None]
  - DYSPNOEA [None]
  - HYPERKALAEMIA [None]
  - MALAISE [None]
  - RENAL FAILURE ACUTE [None]
  - VOMITING [None]
